FAERS Safety Report 14585732 (Version 1)
Quarter: 2018Q1

REPORT INFORMATION
  Report Type: Spontaneous
  Country: IT (occurrence: IT)
  Receive Date: 20180301
  Receipt Date: 20180301
  Transmission Date: 20180509
  Serious: Yes (Hospitalization)
  Sender: FDA-Public Use
  Company Number: IT-CIPLA LTD.-2018IT07131

PATIENT

DRUGS (1)
  1. LEVETIRACETAM. [Suspect]
     Active Substance: LEVETIRACETAM
     Indication: EPILEPSY
     Dosage: 1000 MG, PER DAY
     Route: 048
     Dates: start: 20170101, end: 20170611

REACTIONS (3)
  - Epilepsy [Unknown]
  - Sopor [Unknown]
  - Tremor [Unknown]

NARRATIVE: CASE EVENT DATE: 20170611
